FAERS Safety Report 4731626-3 (Version None)
Quarter: 2005Q3

REPORT INFORMATION
  Report Type: 
  Country: None (occurrence: None)
  Receive Date: 20050725
  Receipt Date: 20050214
  Transmission Date: 20060218
  Serious: Yes (Other)
  Sender: FDA-Public Use
  Company Number: WAES 0502USA01896

PATIENT
  Age: 62 Year
  Sex: Male
  Weight: 97.5234 kg

DRUGS (2)
  1. VIOXX [Suspect]
     Indication: OSTEOARTHRITIS
     Dosage: 25 MG/DAILY/PO;  PO
     Route: 048
     Dates: start: 20020128, end: 20030225
  2. VIOXX [Suspect]
     Indication: OSTEOARTHRITIS
     Dosage: 25 MG/DAILY/PO;  PO
     Route: 048
     Dates: end: 20030715

REACTIONS (9)
  - ANAEMIA [None]
  - BLOOD TESTOSTERONE DECREASED [None]
  - EMOTIONAL DISTRESS [None]
  - ERECTILE DYSFUNCTION [None]
  - FATIGUE [None]
  - LIBIDO DECREASED [None]
  - PYURIA [None]
  - RENAL FAILURE [None]
  - URINARY TRACT INFECTION [None]
